FAERS Safety Report 25113968 (Version 1)
Quarter: 2025Q1

REPORT INFORMATION
  Report Type: Report from Study
  Country: CA (occurrence: CA)
  Receive Date: 20250324
  Receipt Date: 20250324
  Transmission Date: 20250409
  Serious: Yes (Other)
  Sender: TAKEDA
  Company Number: CA-TAKEDA-2025TUS028705

PATIENT
  Sex: Female

DRUGS (3)
  1. VEDOLIZUMAB [Suspect]
     Active Substance: VEDOLIZUMAB
     Indication: Colitis ulcerative
  2. IRON [Concomitant]
     Active Substance: IRON
     Indication: Mineral supplementation
  3. PURINETHOL [Concomitant]
     Active Substance: MERCAPTOPURINE

REACTIONS (1)
  - Haematochezia [Not Recovered/Not Resolved]
